FAERS Safety Report 20212876 (Version 2)
Quarter: 2021Q4

REPORT INFORMATION
  Report Type: Report from Study
  Country: AU (occurrence: AU)
  Receive Date: 20211221
  Receipt Date: 20211224
  Transmission Date: 20220303
  Serious: Yes (Hospitalization)
  Sender: FDA-Public Use
  Company Number: AU-GLAXOSMITHKLINE-AU2021GSK255557

PATIENT
  Age: 68 Year
  Sex: Female

DRUGS (18)
  1. BELANTAMAB MAFODOTIN [Suspect]
     Active Substance: BELANTAMAB MAFODOTIN
     Indication: Plasma cell myeloma
     Dosage: 1.9 MG/KG
     Route: 042
  2. BORTEZOMIB [Suspect]
     Active Substance: BORTEZOMIB
     Indication: Plasma cell myeloma
     Dosage: UNK
  3. ONDANSETRON [Concomitant]
     Active Substance: ONDANSETRON
     Indication: Nausea
     Dosage: 8 MG, PRN
     Route: 060
     Dates: start: 20211112
  4. CITALOPRAM [Concomitant]
     Active Substance: CITALOPRAM HYDROBROMIDE
     Indication: Depression
     Dosage: 30 MG, QD
     Route: 048
     Dates: start: 200208
  5. METOPROLOL [Concomitant]
     Active Substance: METOPROLOL
     Indication: Supraventricular tachycardia
     Dosage: 25 MG, BID
     Route: 048
     Dates: start: 201504
  6. NALOXONE HYDROCHLORIDE\OXYCODONE HYDROCHLORIDE [Concomitant]
     Active Substance: NALOXONE HYDROCHLORIDE\OXYCODONE HYDROCHLORIDE
     Indication: Pain
     Dosage: 10 MG, QD
     Route: 048
     Dates: start: 201812
  7. VITAMIN D3 [Concomitant]
     Active Substance: CHOLECALCIFEROL
     Indication: Vitamin D decreased
     Dosage: 25 UG, QD
     Route: 048
     Dates: start: 202104
  8. CRANBERRY FORTE [Concomitant]
     Indication: Urinary tract infection
     Dosage: 460 MG, QD
     Route: 048
     Dates: start: 20210827
  9. ACETAMINOPHEN [Concomitant]
     Active Substance: ACETAMINOPHEN
     Indication: Headache
     Dosage: 8 MG, PRN
     Route: 060
     Dates: start: 20211112
  10. MAGNESIUM [Concomitant]
     Active Substance: MAGNESIUM
     Indication: Muscle spasms
     Dosage: 600 UG, QD
     Route: 048
     Dates: start: 20210924
  11. AZITHROMYCIN [Concomitant]
     Active Substance: AZITHROMYCIN
     Indication: Upper respiratory tract infection
     Dosage: 500 MG, QD
     Route: 048
     Dates: start: 20211122, end: 20211124
  12. ALBUTEROL [Concomitant]
     Active Substance: ALBUTEROL
     Indication: Urinary tract infection
     Dosage: 1 PUFF(S), PRN
     Route: 055
     Dates: start: 20211122
  13. PREDNISOLONE [Concomitant]
     Active Substance: PREDNISOLONE
     Indication: Wheezing
     Dosage: 30 MG, QD
     Route: 048
     Dates: start: 20211120
  14. FLUOROMETHOLONE [Concomitant]
     Active Substance: FLUOROMETHOLONE
     Indication: Prophylaxis
     Dosage: 0.1 %, PRN
     Route: 061
     Dates: start: 20211130
  15. SULFAMETHOXAZOLE\TRIMETHOPRIM [Concomitant]
     Active Substance: SULFAMETHOXAZOLE\TRIMETHOPRIM
     Indication: Pneumocystis jirovecii pneumonia
     Dosage: 960 MG, 3 TIMES PER WEEK
     Route: 048
     Dates: start: 20211113
  16. VALACYCLOVIR HYDROCHLORIDE [Concomitant]
     Active Substance: VALACYCLOVIR HYDROCHLORIDE
     Indication: Antiviral prophylaxis
     Dosage: 500 MG, QD
     Route: 048
     Dates: start: 20211112
  17. REFRESH CELLUVISC [Concomitant]
     Active Substance: CARBOXYMETHYLCELLULOSE SODIUM
     Dosage: 1 GTT, PRN
     Route: 031
     Dates: start: 20211112
  18. DEXAMETHASONE [Suspect]
     Active Substance: DEXAMETHASONE

REACTIONS (1)
  - Gastritis [Recovering/Resolving]

NARRATIVE: CASE EVENT DATE: 20211212
